FAERS Safety Report 19427523 (Version 6)
Quarter: 2021Q3

REPORT INFORMATION
  Report Type: Report from Study
  Country: US (occurrence: US)
  Receive Date: 20210617
  Receipt Date: 20210929
  Transmission Date: 20211014
  Serious: Yes (Hospitalization)
  Sender: FDA-Public Use
  Company Number: US-ROCHE-2848824

PATIENT
  Age: 62 Year
  Sex: Female
  Weight: 74.3 kg

DRUGS (28)
  1. NACL [Concomitant]
     Active Substance: SODIUM CHLORIDE
     Route: 042
     Dates: start: 20210217
  2. SENOKOT [Concomitant]
     Active Substance: SENNOSIDES
     Indication: CONSTIPATION
     Route: 048
     Dates: start: 20210508, end: 20210509
  3. DELTASONE [Concomitant]
     Active Substance: PREDNISONE
     Indication: PANCREATITIS
     Route: 048
     Dates: start: 20210509, end: 20210516
  4. BACTRIM DS [Concomitant]
     Active Substance: SULFAMETHOXAZOLE\TRIMETHOPRIM
     Indication: URINARY TRACT INFECTION
     Route: 048
     Dates: start: 20210521, end: 20210527
  5. PREDNISONE. [Concomitant]
     Active Substance: PREDNISONE
     Route: 048
     Dates: start: 20210626, end: 20210709
  6. BENADRYL [Concomitant]
     Active Substance: DIPHENHYDRAMINE HYDROCHLORIDE
     Indication: DERMATITIS ACNEIFORM
     Route: 048
     Dates: start: 20210109
  7. LOSARTAN. [Concomitant]
     Active Substance: LOSARTAN
     Indication: HYPERTENSION
     Route: 048
     Dates: start: 20210305
  8. PREDNISONE. [Concomitant]
     Active Substance: PREDNISONE
     Route: 048
     Dates: start: 20210713
  9. GLIPIZIDE. [Concomitant]
     Active Substance: GLIPIZIDE
     Indication: HYPERGLYCAEMIA
     Route: 048
     Dates: start: 20210324, end: 20210518
  10. PROTEIN [Concomitant]
     Active Substance: PROTEIN
     Indication: HYPOMAGNESAEMIA
     Route: 048
     Dates: start: 20210215, end: 20210912
  11. PROTEIN [Concomitant]
     Active Substance: PROTEIN
     Route: 048
     Dates: start: 20210913
  12. COBIMETINIB. [Suspect]
     Active Substance: COBIMETINIB
     Indication: OVARIAN CANCER RECURRENT
     Dosage: DOSE LAST STUDY DRUG ADMIN PRIOR AE IS 40 MG 09?JUN?2021?DOSE LAST STUDY DRUG ADMIN PRIOR AE IS 40 M
     Route: 048
     Dates: start: 20201230
  13. MAGNESIUM [Concomitant]
     Active Substance: MAGNESIUM
     Indication: HYPOMAGNESAEMIA
     Route: 048
     Dates: start: 20210215, end: 20210912
  14. METHYLPREDNISOLON [Concomitant]
     Active Substance: METHYLPREDNISOLONE
     Indication: PANCREATITIS
     Route: 042
     Dates: start: 20210507, end: 20210509
  15. LOVENOX [Concomitant]
     Active Substance: ENOXAPARIN SODIUM
     Indication: ANTICOAGULANT THERAPY
     Route: 058
     Dates: start: 20210508, end: 20210509
  16. DELTASONE [Concomitant]
     Active Substance: PREDNISONE
     Route: 048
     Dates: start: 20210517, end: 20210521
  17. PREDNISONE. [Concomitant]
     Active Substance: PREDNISONE
     Indication: PANCREATITIS
     Route: 048
     Dates: start: 20210605, end: 20210625
  18. MACROBID [Concomitant]
     Active Substance: NITROFURANTOIN\NITROFURANTOIN MONOHYDRATE
     Indication: URINARY TRACT INFECTION
     Route: 048
     Dates: start: 20210210
  19. MAGNESIUM [Concomitant]
     Active Substance: MAGNESIUM
     Route: 048
     Dates: start: 20210913
  20. LOVENOX [Concomitant]
     Active Substance: ENOXAPARIN SODIUM
     Route: 058
     Dates: start: 20210629
  21. GLIPIZIDE. [Concomitant]
     Active Substance: GLIPIZIDE
     Route: 048
     Dates: start: 20210519
  22. MIRALAX [Concomitant]
     Active Substance: POLYETHYLENE GLYCOL 3350
     Indication: CONSTIPATION
     Route: 048
     Dates: start: 20210208
  23. PREDNISONE. [Concomitant]
     Active Substance: PREDNISONE
     Route: 048
     Dates: start: 20210710, end: 20210712
  24. NIRAPARIB [Suspect]
     Active Substance: NIRAPARIB
     Indication: OVARIAN CANCER RECURRENT
     Dosage: DOSE LAST STUDY DRUG ADMIN PRIOR AE IS 200 MG 09?JUN?2021?DOSE LAST STUDY DRUG ADMIN PRIOR AE WAS 20
     Route: 048
     Dates: start: 20201230
  25. IMITREX [Concomitant]
     Active Substance: SUMATRIPTAN SUCCINATE
     Indication: HEADACHE
     Route: 048
     Dates: start: 20210205
  26. ATEZOLIZUMAB. [Suspect]
     Active Substance: ATEZOLIZUMAB
     Indication: OVARIAN CANCER RECURRENT
     Dosage: DOSE LAST STUDY DRUG ADMIN PRIOR AE WAS 840 MG 23?APR?2021
     Route: 041
     Dates: start: 20201230
  27. DELTASONE [Concomitant]
     Active Substance: PREDNISONE
     Route: 048
     Dates: start: 20210521, end: 20210604
  28. MUCINEX DM [Concomitant]
     Active Substance: DEXTROMETHORPHAN HYDROBROMIDE\GUAIFENESIN
     Indication: NASAL CONGESTION
     Route: 048
     Dates: start: 20210607

REACTIONS (5)
  - Fatigue [Recovered/Resolved]
  - Hyperglycaemia [Not Recovered/Not Resolved]
  - Dyspnoea [Recovered/Resolved]
  - Asthenia [Recovered/Resolved]
  - Blood creatine phosphokinase increased [Recovered/Resolved]

NARRATIVE: CASE EVENT DATE: 20210604
